FAERS Safety Report 7315955-5 (Version None)
Quarter: 2011Q1

REPORT INFORMATION
  Report Type: 
  Country: None (occurrence: None)
  Receive Date: 20110225
  Receipt Date: 20110217
  Transmission Date: 20110831
  Serious: Yes (Death)
  Sender: FDA-Public Use
  Company Number: PT-TEVA-268083ISR

PATIENT
  Sex: Male
  Weight: 80 kg

DRUGS (3)
  1. CAPECITABINE [Concomitant]
     Dates: start: 20110113
  2. CISPLATIN [Suspect]
     Indication: METASTATIC NEOPLASM
     Route: 042
     Dates: start: 20110113, end: 20110113
  3. DOCETAXEL [Concomitant]
     Route: 042
     Dates: start: 20110113, end: 20110113

REACTIONS (2)
  - RENAL FAILURE [None]
  - MULTI-ORGAN FAILURE [None]
